FAERS Safety Report 7746303-4 (Version None)
Quarter: 2011Q3

REPORT INFORMATION
  Report Type: 
  Country: None (occurrence: None)
  Receive Date: 20110913
  Receipt Date: 20110902
  Transmission Date: 20111222
  Serious: Yes (Other)
  Sender: FDA-Public Use
  Company Number: CN-BAYER-2011-080403

PATIENT
  Age: 40 Year
  Sex: Female

DRUGS (1)
  1. MIRENA [Suspect]
     Indication: CONTRACEPTION
     Dosage: UNK
     Route: 015
     Dates: start: 20080103

REACTIONS (5)
  - AMENORRHOEA [None]
  - BREAST CANCER [None]
  - BREAST HYPERPLASIA [None]
  - BREAST MASS [None]
  - BREAST TENDERNESS [None]
